FAERS Safety Report 12194339 (Version 1)
Quarter: 2016Q1

REPORT INFORMATION
  Report Type: Spontaneous
  Country: US (occurrence: None)
  Receive Date: 20160318
  Receipt Date: 20160318
  Transmission Date: 20160526
  Serious: Yes (Disabling)
  Sender: FDA-Public Use
  Company Number: None

PATIENT
  Age: 61 Year
  Sex: Female
  Weight: 81.65 kg

DRUGS (4)
  1. DOCETAXEL 151MG [Suspect]
     Active Substance: DOCETAXEL
     Indication: BREAST CANCER
     Dosage: INFUSION 6 XS 3 WK INTERVAL --
     Dates: start: 20150422, end: 20150805
  2. DOCETAXEL 151MG [Suspect]
     Active Substance: DOCETAXEL
     Indication: HER-2 POSITIVE BREAST CANCER
     Dosage: INFUSION 6 XS 3 WK INTERVAL --
     Dates: start: 20150422, end: 20150805
  3. FLUOXETINE [Concomitant]
     Active Substance: FLUOXETINE HYDROCHLORIDE
  4. LEVOTHROXINE [Concomitant]

REACTIONS (1)
  - Cataract [None]

NARRATIVE: CASE EVENT DATE: 20150805
